FAERS Safety Report 7296368-1 (Version None)
Quarter: 2011Q1

REPORT INFORMATION
  Report Type: 
  Country: None (occurrence: None)
  Receive Date: 20110216
  Receipt Date: 20110211
  Transmission Date: 20110831
  Serious: Yes (Hospitalization)
  Sender: FDA-Public Use
  Company Number: US-JNJCH-2011003761

PATIENT
  Age: 59 Year
  Sex: Female

DRUGS (2)
  1. ASPIRIN [Suspect]
     Indication: THROMBOSIS PROPHYLAXIS
     Dosage: TEXT:UNKNOWN
     Route: 065
  2. WARFARIN SODIUM [Suspect]
     Indication: THROMBOSIS PROPHYLAXIS
     Dosage: TEXT:UNKNOWN
     Route: 065

REACTIONS (1)
  - ACQUIRED VON WILLEBRAND'S DISEASE [None]
